FAERS Safety Report 5086169-7 (Version None)
Quarter: 2006Q3

REPORT INFORMATION
  Report Type: 
  Country: None (occurrence: None)
  Receive Date: 20060818
  Receipt Date: 20060808
  Transmission Date: 20061208
  Serious: Yes (Hospitalization)
  Sender: FDA-Public Use
  Company Number: 2006097451

PATIENT
  Age: 70 Year
  Sex: Female

DRUGS (1)
  1. IRINOTECAN HYDROCHLORIDE [Suspect]
     Indication: OVARIAN CANCER
     Dosage: 100 MG/M2 (CYCLIC), INTRAVENOUS - MIDDLE OF JULY
     Route: 042

REACTIONS (4)
  - DIZZINESS POSTURAL [None]
  - HYPOKALAEMIA [None]
  - INCONTINENCE [None]
  - LOSS OF CONSCIOUSNESS [None]
